APPROVED DRUG PRODUCT: DELFLEX W/ DEXTROSE 1.5% LOW MAGNESIUM LOW CALCIUM IN PLASTIC CONTAINER
Active Ingredient: CALCIUM CHLORIDE; DEXTROSE; MAGNESIUM CHLORIDE; SODIUM CHLORIDE; SODIUM LACTATE
Strength: 18.4MG/100ML;1.5GM/100ML;5.08MG/100ML;538MG/100ML;448MG/100ML
Dosage Form/Route: SOLUTION;INTRAPERITONEAL
Application: N020171 | Product #001 | TE Code: AT
Applicant: FRESENIUS MEDICAL CARE NORTH AMERICA
Approved: Aug 19, 1992 | RLD: Yes | RS: Yes | Type: RX